FAERS Safety Report 10759928 (Version 3)
Quarter: 2015Q3

REPORT INFORMATION
  Report Type: Spontaneous
  Country: TR (occurrence: TR)
  Receive Date: 20150203
  Receipt Date: 20150724
  Transmission Date: 20151125
  Serious: Yes (Death, Hospitalization, Other)
  Sender: FDA-Public Use
  Company Number: TR-ASTRAZENECA-2015SE09920

PATIENT
  Age: 54 Year
  Sex: Female

DRUGS (7)
  1. INDAPAMIDE. [Concomitant]
     Active Substance: INDAPAMIDE
  2. BRILINTA [Suspect]
     Active Substance: TICAGRELOR
     Indication: CORONARY ANGIOPLASTY
     Route: 048
     Dates: start: 20141215, end: 20150120
  3. ATORVASTATIN [Concomitant]
     Active Substance: ATORVASTATIN
  4. METOPROLOL [Concomitant]
     Active Substance: METOPROLOL
  5. ASPIRIN. [Concomitant]
     Active Substance: ASPIRIN
     Indication: HYPERTENSION
  6. BRILINTA [Suspect]
     Active Substance: TICAGRELOR
     Indication: STENT PLACEMENT
     Route: 048
     Dates: start: 20141215, end: 20150120
  7. BRILINTA [Suspect]
     Active Substance: TICAGRELOR
     Indication: THROMBOSIS
     Route: 048
     Dates: start: 20141215, end: 20150120

REACTIONS (11)
  - Haemorrhagic transformation stroke [Fatal]
  - Dizziness [Unknown]
  - Vomiting [Unknown]
  - Ischaemic stroke [Fatal]
  - Depressed level of consciousness [Unknown]
  - Coma [Fatal]
  - Dysarthria [Unknown]
  - Vertigo [Unknown]
  - Thrombocytopenia [Unknown]
  - Diplopia [Unknown]
  - Nausea [Unknown]

NARRATIVE: CASE EVENT DATE: 201501
